FAERS Safety Report 7097349-3 (Version None)
Quarter: 2010Q4

REPORT INFORMATION
  Report Type: 
  Country: None (occurrence: None)
  Receive Date: 20101111
  Receipt Date: 20101103
  Transmission Date: 20110411
  Serious: Yes (Hospitalization)
  Sender: FDA-Public Use
  Company Number: US-CELGENEUS-163-21880-10102694

PATIENT
  Sex: Female

DRUGS (7)
  1. REVLIMID [Suspect]
     Indication: MULTIPLE MYELOMA
     Route: 048
     Dates: start: 20100701
  2. DECADRON [Concomitant]
     Route: 048
     Dates: start: 20100701
  3. FLONASE [Concomitant]
     Route: 065
  4. LORTAB [Concomitant]
     Indication: PAIN
     Dosage: 10-325
     Route: 065
  5. LYRICA [Concomitant]
     Route: 065
  6. SIMVASTATIN [Concomitant]
     Route: 065
  7. WARFARIN [Concomitant]
     Route: 065
     Dates: start: 20100701

REACTIONS (1)
  - NEPHROLITHIASIS [None]
